FAERS Safety Report 4536825-1 (Version None)
Quarter: 2004Q4

REPORT INFORMATION
  Report Type: 
  Country: None (occurrence: None)
  Receive Date: 20041220
  Receipt Date: 20041202
  Transmission Date: 20050328
  Serious: Yes (Hospitalization)
  Sender: FDA-Public Use
  Company Number: 2003AP01754

PATIENT
  Age: 54 Year
  Sex: Male

DRUGS (3)
  1. IRESSA [Suspect]
     Indication: LUNG ADENOCARCINOMA
     Dosage: 250 MG DAILY PO
     Route: 048
     Dates: start: 20030121
  2. RADIATION THERAPY [Concomitant]
  3. GEMCITABINE [Concomitant]

REACTIONS (6)
  - ASTHENIA [None]
  - CEREBRAL HAEMORRHAGE [None]
  - GAIT DISTURBANCE [None]
  - HEMIPARESIS [None]
  - HYPOAESTHESIA [None]
  - VOMITING [None]
